FAERS Safety Report 19503896 (Version 2)
Quarter: 2021Q3

REPORT INFORMATION
  Report Type: Report from Study
  Country: CO (occurrence: CO)
  Receive Date: 20210707
  Receipt Date: 20210710
  Transmission Date: 20211014
  Serious: Yes (Life-Threatening, Hospitalization, Other)
  Sender: FDA-Public Use
  Company Number: NVSC2021CO141319

PATIENT
  Age: 70 Year
  Sex: Female
  Weight: 70 kg

DRUGS (9)
  1. XOLAIR [Suspect]
     Active Substance: OMALIZUMAB
     Dosage: UNK
     Route: 065
     Dates: start: 20210605
  2. XOLAIR [Suspect]
     Active Substance: OMALIZUMAB
     Dosage: 150 MG, QMO
     Route: 058
  3. AMITRIPTYLINE [Concomitant]
     Active Substance: AMITRIPTYLINE
     Indication: SLEEP DISORDER
     Dosage: 25 MG, QD
     Route: 048
     Dates: start: 2012
  4. CETIRIZINE [Concomitant]
     Active Substance: CETIRIZINE HYDROCHLORIDE
     Indication: ASTHMA
     Dosage: 10 MG, QD
     Route: 048
     Dates: start: 2012
  5. FLUTICASONE. [Concomitant]
     Active Substance: FLUTICASONE
     Indication: ASTHMA
     Dosage: UNK UNK, QD (1 PUFF)
     Route: 045
     Dates: start: 2012
  6. XOLAIR [Suspect]
     Active Substance: OMALIZUMAB
     Indication: ASTHMA
     Dosage: 150 MG, QMO
     Route: 058
     Dates: start: 2012
  7. SERETIDE [Concomitant]
     Active Substance: FLUTICASONE PROPIONATE\SALMETEROL XINAFOATE
     Indication: ASTHMA
     Dosage: UNK UNK, QD (1 PUFF)
     Route: 048
     Dates: start: 2012
  8. MONTELUKAST [Suspect]
     Active Substance: MONTELUKAST SODIUM
     Indication: ASTHMA
     Dosage: 10 MG, QD
     Route: 048
     Dates: start: 2012
  9. PRAMIPEXOLE. [Concomitant]
     Active Substance: PRAMIPEXOLE
     Indication: SLEEP APNOEA SYNDROME
     Dosage: 1.5 MG, QD
     Route: 048
     Dates: start: 2012

REACTIONS (13)
  - Fluid retention [Recovered/Resolved]
  - Vocal cord disorder [Unknown]
  - Hypersensitivity [Unknown]
  - Carpal tunnel syndrome [Unknown]
  - Cough [Unknown]
  - COVID-19 [Recovered/Resolved]
  - Anosmia [Unknown]
  - Sneezing [Unknown]
  - Chronic obstructive pulmonary disease [Unknown]
  - Ageusia [Unknown]
  - Oxygen saturation decreased [Recovered/Resolved]
  - Rhinitis [Unknown]
  - Body temperature increased [Recovered/Resolved]

NARRATIVE: CASE EVENT DATE: 20210106
